FAERS Safety Report 4503973-1 (Version None)
Quarter: 2004Q4

REPORT INFORMATION
  Report Type: 
  Country: None (occurrence: None)
  Receive Date: 20041115
  Receipt Date: 20041108
  Transmission Date: 20050328
  Serious: Yes (Other)
  Sender: FDA-Public Use
  Company Number: 003524

PATIENT
  Age: 66 Year
  Sex: Female

DRUGS (3)
  1. MEDROXYPROGESTERONE ACETATE [Suspect]
     Dates: start: 19870101, end: 20000501
  2. MEDROXYPROGESTERONE ACETATE [Suspect]
     Dates: start: 20000501, end: 20030401
  3. PREMARIN [Suspect]
     Dates: start: 19870101, end: 20000501

REACTIONS (1)
  - BREAST CANCER [None]
